FAERS Safety Report 6635971-6 (Version None)
Quarter: 2010Q1

REPORT INFORMATION
  Report Type: 
  Country: None (occurrence: None)
  Receive Date: 20100225
  Receipt Date: 20090311
  Transmission Date: 20100710
  Serious: Yes (Hospitalization, Other)
  Sender: FDA-Public Use
  Company Number: US-JNJFOC-20090304217

PATIENT
  Age: 47 Year
  Sex: Female

DRUGS (4)
  1. IBUPROFEN [Suspect]
     Indication: PAIN IN EXTREMITY
  2. ALEVE [Suspect]
     Indication: PAIN IN EXTREMITY
  3. NAPROXEN [Suspect]
     Indication: PAIN IN EXTREMITY
  4. REBIF [Concomitant]

REACTIONS (1)
  - GASTRIC ULCER HAEMORRHAGE [None]
